FAERS Safety Report 9753226 (Version 2)
Quarter: 2015Q3

REPORT INFORMATION
  Report Type: Spontaneous
  Country: US (occurrence: US)
  Receive Date: 20131213
  Receipt Date: 20150805
  Transmission Date: 20151125
  Serious: No
  Sender: FDA-Public Use
  Company Number: US-GILEAD-2010-0027624

PATIENT
  Age: 54 Year
  Sex: Female

DRUGS (7)
  1. EFFEXOR XR [Suspect]
     Active Substance: VENLAFAXINE HYDROCHLORIDE
  2. VIVELLE-DOT [Concomitant]
     Active Substance: ESTRADIOL
  3. LETAIRIS [Suspect]
     Active Substance: AMBRISENTAN
     Indication: PULMONARY ARTERIAL HYPERTENSION
     Route: 048
     Dates: start: 20091030, end: 20100212
  4. LIPITOR [Concomitant]
     Active Substance: ATORVASTATIN CALCIUM
  5. LOPRESSOR [Suspect]
     Active Substance: METOPROLOL TARTRATE
  6. PREVACID [Concomitant]
     Active Substance: LANSOPRAZOLE
  7. BENZONATATE. [Concomitant]
     Active Substance: BENZONATATE

REACTIONS (2)
  - Nasal congestion [Recovered/Resolved]
  - Sinusitis [Recovered/Resolved]
